FAERS Safety Report 8641078 (Version 4)
Quarter: 2019Q2

REPORT INFORMATION
  Report Type: Spontaneous
  Country: GB (occurrence: GB)
  Receive Date: 20120628
  Receipt Date: 20190530
  Transmission Date: 20190711
  Serious: Yes (Other)
  Sender: FDA-Public Use
  Company Number: GB-MYLANLABS-2012S1012139

PATIENT
  Age: 16 Year
  Sex: Male
  Weight: 56.4 kg

DRUGS (11)
  1. OLANZAPINE. [Suspect]
     Active Substance: OLANZAPINE
     Dosage: 5 MG,ONCE
     Dates: start: 20120523, end: 20120523
  2. OLANZAPINE. [Suspect]
     Active Substance: OLANZAPINE
     Dosage: UNK
  3. OLANZAPINE. [Suspect]
     Active Substance: OLANZAPINE
     Indication: PSYCHOTIC DISORDER
     Dosage: 5 MG,QD
     Dates: start: 20120524
  4. OLANZAPINE. [Suspect]
     Active Substance: OLANZAPINE
     Dosage: 5 MG,BID
     Route: 030
     Dates: start: 20120521, end: 20120521
  5. OLANZAPINE. [Suspect]
     Active Substance: OLANZAPINE
     Dosage: 15 MG,QD
     Route: 048
     Dates: start: 20120523
  6. OLANZAPINE. [Suspect]
     Active Substance: OLANZAPINE
     Dosage: 5 MILLIGRAM, PRN
     Route: 030
     Dates: start: 20120521, end: 20120523
  7. OLANZAPINE. [Suspect]
     Active Substance: OLANZAPINE
     Dosage: 2.5 MG,ONCE
     Route: 030
     Dates: start: 20120522
  8. OLANZAPINE. [Suspect]
     Active Substance: OLANZAPINE
     Dosage: 15 MILLIGRAM, QD
     Dates: start: 20120522
  9. ZUCLOPENTHIXOL [Concomitant]
     Active Substance: ZUCLOPENTHIXOL
     Indication: PSYCHOTIC DISORDER
     Dosage: 50 MG,QD
     Route: 030
     Dates: start: 20120523, end: 20120523
  10. OLANZAPINE. [Suspect]
     Active Substance: OLANZAPINE
     Dosage: 15 MILLIGRAM, QD
     Route: 048
     Dates: start: 20120522
  11. OLANZAPINE. [Suspect]
     Active Substance: OLANZAPINE
     Dosage: 2.5 MILLIGRAM, PRN
     Route: 030
     Dates: start: 20120521, end: 20120523

REACTIONS (8)
  - Blood thrombin increased [Unknown]
  - Troponin increased [Recovering/Resolving]
  - Pericarditis [Recovered/Resolved]
  - Blood creatinine increased [Unknown]
  - Chest pain [Unknown]
  - Condition aggravated [Unknown]
  - Myocarditis [Recovered/Resolved]
  - Psychotic disorder [Unknown]

NARRATIVE: CASE EVENT DATE: 20120525
